FAERS Safety Report 7653180-9 (Version None)
Quarter: 2011Q3

REPORT INFORMATION
  Report Type: 
  Country: None (occurrence: None)
  Receive Date: 20110803
  Receipt Date: 20110726
  Transmission Date: 20111222
  Serious: Yes (Other)
  Sender: FDA-Public Use
  Company Number: JP-SANOFI-AVENTIS-2011SA048069

PATIENT
  Age: 86 Year
  Sex: Male

DRUGS (6)
  1. ISONIAZID [Concomitant]
     Indication: PULMONARY TUBERCULOSIS
  2. RIFAMPICIN [Suspect]
     Indication: PULMONARY TUBERCULOSIS
     Route: 065
  3. ETHAMBUTOL HYDROCHLORIDE [Concomitant]
  4. ISONIAZID [Concomitant]
  5. ETHAMBUTOL HYDROCHLORIDE [Concomitant]
     Indication: PULMONARY TUBERCULOSIS
  6. RIFAMPICIN [Suspect]
     Route: 065

REACTIONS (5)
  - PYREXIA [None]
  - PNEUMONITIS [None]
  - RASH [None]
  - PLEURAL EFFUSION [None]
  - DIARRHOEA [None]
